FAERS Safety Report 16002199 (Version 1)
Quarter: 2019Q1

REPORT INFORMATION
  Report Type: Spontaneous
  Country: US (occurrence: US)
  Receive Date: 20190225
  Receipt Date: 20190225
  Transmission Date: 20190418
  Serious: No
  Sender: FDA-Public Use
  Company Number: US-IGSA-SR10006381

PATIENT
  Age: 64 Year
  Sex: Male
  Weight: 86 kg

DRUGS (8)
  1. PROLASTIN-C [Suspect]
     Active Substance: .ALPHA.1-PROTEINASE INHIBITOR HUMAN
     Dosage: 5160 MG, Q.WK.
     Route: 042
     Dates: start: 20180523
  2. SYMBICORT [Concomitant]
     Active Substance: BUDESONIDE\FORMOTEROL FUMARATE DIHYDRATE
  3. PROLASTIN-C [Suspect]
     Active Substance: .ALPHA.1-PROTEINASE INHIBITOR HUMAN
     Indication: ALPHA-1 ANTI-TRYPSIN DEFICIENCY
     Dosage: 5160 MG, Q.WK.
     Route: 042
     Dates: start: 20180509
  4. PROLASTIN-C [Suspect]
     Active Substance: .ALPHA.1-PROTEINASE INHIBITOR HUMAN
     Dosage: 5160 MG, Q.WK.
     Route: 042
     Dates: start: 20131119
  5. DALIRESP [Concomitant]
     Active Substance: ROFLUMILAST
  6. PROLASTIN-C [Suspect]
     Active Substance: .ALPHA.1-PROTEINASE INHIBITOR HUMAN
     Dosage: 5160 MG, Q.WK.
     Route: 042
     Dates: start: 20180516
  7. ATROVENT [Concomitant]
     Active Substance: IPRATROPIUM BROMIDE
  8. FLOMAX [Concomitant]
     Active Substance: TAMSULOSIN HYDROCHLORIDE

REACTIONS (2)
  - Headache [Recovered/Resolved]
  - Contusion [Recovered/Resolved]

NARRATIVE: CASE EVENT DATE: 20180509
